FAERS Safety Report 4502853-5 (Version None)
Quarter: 2004Q4

REPORT INFORMATION
  Report Type: 
  Country: None (occurrence: None)
  Receive Date: 20041116
  Receipt Date: 20041116
  Transmission Date: 20050328
  Serious: Yes (Life-Threatening, Hospitalization, Disabling)
  Sender: FDA-Public Use
  Company Number: None

PATIENT
  Sex: Female
  Weight: 74.8435 kg

DRUGS (5)
  1. KLONOPIN [Suspect]
     Indication: ANXIETY
     Dosage: 1 TO 1/2 M 4-5 X/DAY ORAL
     Route: 048
     Dates: start: 20020506, end: 20040809
  2. KLONOPIN [Suspect]
     Indication: DEPRESSION
     Dosage: 1 TO 1/2 M 4-5 X/DAY ORAL
     Route: 048
     Dates: start: 20020506, end: 20040809
  3. CELEXA [Concomitant]
  4. AMBIEN [Concomitant]
  5. SYNTHROID [Concomitant]

REACTIONS (7)
  - ASTHENIA [None]
  - CONVULSION [None]
  - DEPRESSION [None]
  - DRUG WITHDRAWAL SYNDROME [None]
  - DYSKINESIA [None]
  - REBOUND EFFECT [None]
  - SUICIDAL IDEATION [None]
